FAERS Safety Report 6926218-1 (Version None)
Quarter: 2010Q3

REPORT INFORMATION
  Report Type: 
  Country: None (occurrence: None)
  Receive Date: 20100811
  Receipt Date: 20100805
  Transmission Date: 20110219
  Serious: Yes (Hospitalization, Other)
  Sender: FDA-Public Use
  Company Number: 016714

PATIENT
  Sex: Male

DRUGS (7)
  1. VIMPAT [Suspect]
     Indication: EPILEPSY
     Dosage: (50 MG ORAL)
     Route: 048
     Dates: start: 20100713
  2. KEPPRA [Concomitant]
  3. TRILEPTAL [Concomitant]
  4. PHENOBARBITAL [Concomitant]
  5. SERENACE [Concomitant]
  6. CALICHEW D3 [Concomitant]
  7. VITAMIN B6 [Concomitant]

REACTIONS (4)
  - DIZZINESS [None]
  - LETHARGY [None]
  - MYALGIA [None]
  - NAUSEA [None]
